FAERS Safety Report 18695483 (Version 3)
Quarter: 2021Q3

REPORT INFORMATION
  Report Type: Report from Study
  Country: JP (occurrence: JP)
  Receive Date: 20210104
  Receipt Date: 20210705
  Transmission Date: 20211014
  Serious: Yes (Hospitalization)
  Sender: FDA-Public Use
  Company Number: JP-UCBSA-2020028899

PATIENT
  Age: 70 Year
  Sex: Female
  Weight: 50.7 kg

DRUGS (22)
  1. LACOSAMIDE. [Suspect]
     Active Substance: LACOSAMIDE
     Dosage: 75 MILLIGRAM, 2X/DAY (BID)
     Route: 048
     Dates: start: 20200508, end: 20200521
  2. DIAZEPAM. [Concomitant]
     Active Substance: DIAZEPAM
     Dosage: 10 MILLIGRAM, ONCE DAILY (QD)
     Route: 042
     Dates: start: 20200303, end: 20200303
  3. MAGNESIUM OXIDE. [Concomitant]
     Active Substance: MAGNESIUM OXIDE
     Indication: CONSTIPATION
     Route: 048
     Dates: start: 20200324
  4. E KEPPRA [Suspect]
     Active Substance: LEVETIRACETAM
     Dosage: 2000 MG DAILY
     Route: 048
     Dates: start: 20200104, end: 20200306
  5. E KEPPRA [Suspect]
     Active Substance: LEVETIRACETAM
     Dosage: 500 MILLIGRAM, 2X/DAY (BID)
     Route: 048
     Dates: start: 20200307, end: 20201214
  6. METFORMIN HYDROCHLORIDE. [Concomitant]
     Active Substance: METFORMIN HYDROCHLORIDE
     Indication: TYPE 2 DIABETES MELLITUS
     Dosage: 500 MG DAILY
     Route: 048
  7. FOSPHENYTOIN SODIUM. [Concomitant]
     Active Substance: FOSPHENYTOIN SODIUM
     Indication: FOCAL DYSCOGNITIVE SEIZURES
     Route: 042
     Dates: start: 20200121, end: 20200121
  8. GLACTIV [Concomitant]
     Active Substance: SITAGLIPTIN
     Indication: TYPE 2 DIABETES MELLITUS
     Route: 048
     Dates: start: 20201116
  9. E KEPPRA [Suspect]
     Active Substance: LEVETIRACETAM
     Indication: FOCAL DYSCOGNITIVE SEIZURES
     Dosage: 1000 MG DAILY
     Route: 048
  10. POTASSIUM GLUCONATE [Concomitant]
     Active Substance: POTASSIUM GLUCONATE
     Indication: HYPOKALAEMIA
     Dosage: 4 GRAM DAILY
     Route: 048
  11. EQUA [Concomitant]
     Active Substance: VILDAGLIPTIN
     Indication: TYPE 2 DIABETES MELLITUS
     Dosage: 50 MG DAILY
     Route: 048
  12. LANSOPRAZOLE. [Concomitant]
     Active Substance: LANSOPRAZOLE
     Indication: GASTROOESOPHAGEAL REFLUX DISEASE
     Dosage: 15 MG DAILY
     Route: 048
  13. MAGMITT [Concomitant]
     Active Substance: MAGNESIUM OXIDE
     Indication: CONSTIPATION
     Dosage: 1500 MG DAILY
     Route: 048
  14. E KEPPRA [Suspect]
     Active Substance: LEVETIRACETAM
     Indication: FOCAL DYSCOGNITIVE SEIZURES
     Dosage: 1500 MG A DAY
     Route: 041
     Dates: start: 20201215, end: 20201215
  15. DIAZEPAM. [Concomitant]
     Active Substance: DIAZEPAM
     Indication: FOCAL DYSCOGNITIVE SEIZURES
     Dosage: 5 MILLIGRAM, ONCE DAILY (QD)
     Route: 042
     Dates: start: 20200121, end: 20200121
  16. LACOSAMIDE. [Suspect]
     Active Substance: LACOSAMIDE
     Dosage: 100 MILLIGRAM, 2X/DAY (BID)
     Route: 048
     Dates: start: 20200522
  17. E KEPPRA [Suspect]
     Active Substance: LEVETIRACETAM
     Dosage: 1500 MG DAILY
     Route: 048
     Dates: start: 20201216
  18. VALSARTAN. [Concomitant]
     Active Substance: VALSARTAN
     Indication: HYPERTENSION
     Dosage: 40 MG DAILY
     Route: 048
  19. PARIET [Concomitant]
     Active Substance: RABEPRAZOLE SODIUM
     Indication: TYPE 2 DIABETES MELLITUS
     Route: 048
     Dates: start: 20200324
  20. LACOSAMIDE. [Suspect]
     Active Substance: LACOSAMIDE
     Indication: FOCAL DYSCOGNITIVE SEIZURES
     Dosage: 50 MILLIGRAM, 2X/DAY (BID)
     Route: 048
     Dates: start: 20200306, end: 20200507
  21. AMLODIPINE BESILATE [Concomitant]
     Active Substance: AMLODIPINE BESYLATE
     Indication: HYPERTENSION
     Dosage: 40 MG DAILY
     Route: 048
  22. K?SUPPLY [Concomitant]
     Active Substance: POTASSIUM CHLORIDE
     Indication: HYPOKALAEMIA
     Route: 048
     Dates: start: 20200324

REACTIONS (4)
  - Altered state of consciousness [Recovered/Resolved]
  - Aphasia [Recovered/Resolved]
  - Clonic convulsion [Recovering/Resolving]
  - Tonic convulsion [Recovered/Resolved]

NARRATIVE: CASE EVENT DATE: 20200507
